FAERS Safety Report 18890432 (Version 1)
Quarter: 2021Q1

REPORT INFORMATION
  Report Type: Other
  Country: CA (occurrence: CA)
  Receive Date: 20210214
  Receipt Date: 20210214
  Transmission Date: 20210420
  Serious: Yes (Death)
  Sender: FDA-Public Use
  Company Number: CA-CELLTRION INC.-2021CA001584

PATIENT

DRUGS (23)
  1. APO?ATORVASTATIN [Concomitant]
     Active Substance: ATORVASTATIN
  2. APO?ZOPICLONE [Concomitant]
     Active Substance: ZOPICLONE
  3. MAGNESIUM [Concomitant]
     Active Substance: MAGNESIUM
  4. NABILONE [Concomitant]
     Active Substance: NABILONE
  5. RISEDRONATE SODIUM. [Concomitant]
     Active Substance: RISEDRONATE SODIUM
  6. PMS?CETIRIZINE [Concomitant]
     Active Substance: CETIRIZINE HYDROCHLORIDE
  7. QUINAPRIL HYDROCHLORIDE. [Concomitant]
     Active Substance: QUINAPRIL HYDROCHLORIDE
  8. APO?AZATHIOPRINE [Concomitant]
     Active Substance: AZATHIOPRINE
  9. HYDROXYCHLOROQUINE /00072603/ [Concomitant]
     Active Substance: HYDROXYCHLOROQUINE SULFATE
  10. LACTAID [Concomitant]
     Active Substance: LACTASE
  11. LACTULOSE. [Concomitant]
     Active Substance: LACTULOSE
  12. LEVEMIR [Concomitant]
     Active Substance: INSULIN DETEMIR
  13. SOLU?CORTEF [Concomitant]
     Active Substance: HYDROCORTISONE SODIUM SUCCINATE
  14. ZINC. [Concomitant]
     Active Substance: ZINC
  15. NOVORAPID [Concomitant]
     Active Substance: INSULIN ASPART
  16. APO?PREDNISONE [Concomitant]
     Active Substance: PREDNISONE
  17. METHADONE [Concomitant]
     Active Substance: METHADONE HYDROCHLORIDE
  18. RITUXIMAB (UNKNOWN) [Suspect]
     Active Substance: RITUXIMAB
     Indication: RHEUMATOID ARTHRITIS
     Dosage: 1000 MILLIGRAM, 1 EVERY 2 WEEKS
     Route: 042
  19. ACETAMINOPHEN. [Concomitant]
     Active Substance: ACETAMINOPHEN
  20. MYCOPHENOLATE MOFETIL. [Concomitant]
     Active Substance: MYCOPHENOLATE MOFETIL
  21. CALCIUM [Concomitant]
     Active Substance: CALCIUM
  22. DIPHENHYDRAMINE. [Concomitant]
     Active Substance: DIPHENHYDRAMINE
  23. METHYLPREDNISOLONE. [Concomitant]
     Active Substance: METHYLPREDNISOLONE

REACTIONS (1)
  - Death [Fatal]
